FAERS Safety Report 15452407 (Version 1)
Quarter: 2018Q4

REPORT INFORMATION
  Report Type: Spontaneous
  Country: ES (occurrence: ES)
  Receive Date: 20181001
  Receipt Date: 20181001
  Transmission Date: 20190204
  Serious: Yes (Other)
  Sender: FDA-Public Use
  Company Number: ES-SA-2018SA270278

PATIENT
  Age: 82 Year
  Sex: Male
  Weight: 63 kg

DRUGS (5)
  1. PRALUENT [Suspect]
     Active Substance: ALIROCUMAB
     Indication: HYPERCHOLESTEROLAEMIA
     Dosage: 150 MG, QOW
     Dates: start: 201802
  2. SINTROM [Concomitant]
     Active Substance: ACENOCOUMAROL
     Dosage: UNK
  3. OMEPRAZOL A [Concomitant]
     Dosage: UNK
  4. ALIROCUMAB PREFILLED PEN [Suspect]
     Active Substance: ALIROCUMAB
     Indication: HYPERCHOLESTEROLAEMIA
     Dosage: 150 MG, QOW
     Dates: start: 201802
  5. ATENOLOL. [Concomitant]
     Active Substance: ATENOLOL
     Dosage: UNK

REACTIONS (3)
  - Optic disc haemorrhage [Not Recovered/Not Resolved]
  - Blindness [Not Recovered/Not Resolved]
  - Deafness [Not Recovered/Not Resolved]

NARRATIVE: CASE EVENT DATE: 201808
